FAERS Safety Report 18277680 (Version 1)
Quarter: 2020Q3

REPORT INFORMATION
  Report Type: Spontaneous
  Country: US (occurrence: US)
  Receive Date: 20200916
  Receipt Date: 20200916
  Transmission Date: 20201103
  Serious: Yes (Other)
  Sender: FDA-Public Use
  Company Number: None

PATIENT
  Age: 10 Year
  Sex: Male

DRUGS (1)
  1. REMICADE [Suspect]
     Active Substance: INFLIXIMAB
     Indication: CROHN^S DISEASE
     Dosage: ?          OTHER FREQUENCY:EVERY6WEEKS;?
     Route: 042
     Dates: start: 20200806

REACTIONS (3)
  - Rash [None]
  - Lip swelling [None]
  - Pruritus [None]

NARRATIVE: CASE EVENT DATE: 20200903
